FAERS Safety Report 13951850 (Version 2)
Quarter: 2017Q3

REPORT INFORMATION
  Report Type: Spontaneous
  Country: US (occurrence: US)
  Receive Date: 20170908
  Receipt Date: 20170928
  Transmission Date: 20171128
  Serious: Yes (Death, Other)
  Sender: FDA-Public Use
  Company Number: US-ACTELION-A-NJ2017-159027

PATIENT
  Age: 85 Year
  Sex: Female

DRUGS (3)
  1. MOMETASONE FUROATE. [Concomitant]
     Active Substance: MOMETASONE FUROATE
  2. CLOBETASOL [Concomitant]
     Active Substance: CLOBETASOL
  3. VALCHLOR [Suspect]
     Active Substance: MECHLORETHAMINE
     Indication: MYCOSIS FUNGOIDES
     Dosage: UNK
     Route: 061
     Dates: start: 20170720, end: 20170829

REACTIONS (8)
  - Pleural effusion [Fatal]
  - Cardiac failure congestive [Fatal]
  - Pericardial excision [Unknown]
  - Acute respiratory distress syndrome [Unknown]
  - Pericardial effusion [Fatal]
  - Respiratory failure [Unknown]
  - Haemothorax [Unknown]
  - Aspiration pleural cavity [Unknown]

NARRATIVE: CASE EVENT DATE: 20170829
